FAERS Safety Report 20618026 (Version 1)
Quarter: 2022Q1

REPORT INFORMATION
  Report Type: Spontaneous
  Country: US (occurrence: None)
  Receive Date: 20220321
  Receipt Date: 20220321
  Transmission Date: 20220423
  Serious: Yes (Other)
  Sender: FDA-Public Use
  Company Number: None

PATIENT
  Age: 63 Year

DRUGS (1)
  1. TYMLOS [Suspect]
     Active Substance: ABALOPARATIDE

REACTIONS (6)
  - Feeling abnormal [None]
  - Bone pain [None]
  - Palpitations [None]
  - Nausea [None]
  - Back pain [None]
  - Intentional dose omission [None]

NARRATIVE: CASE EVENT DATE: 20220318
